FAERS Safety Report 5498785-9 (Version None)
Quarter: 2007Q4

REPORT INFORMATION
  Report Type: 
  Country: None (occurrence: None)
  Receive Date: 20071026
  Receipt Date: 20070718
  Transmission Date: 20080405
  Serious: No
  Sender: FDA-Public Use
  Company Number: A0664839A

PATIENT
  Age: 72 Year
  Sex: Male

DRUGS (11)
  1. ADVAIR DISKUS 100/50 [Suspect]
     Indication: BRONCHIECTASIS
     Dosage: 1PUFF TWICE PER DAY
     Route: 055
     Dates: start: 20061201, end: 20070101
  2. NORVASC [Concomitant]
  3. PRAVACHOL [Concomitant]
  4. TOPROL-XL [Concomitant]
  5. BENICAR HCT [Concomitant]
  6. PLAVIX [Concomitant]
  7. AMBIEN [Concomitant]
  8. ECOTRIN [Concomitant]
  9. VITAMIN TAB [Concomitant]
  10. FISH OIL [Concomitant]
  11. MAGNESIUM SULFATE [Concomitant]

REACTIONS (1)
  - ILL-DEFINED DISORDER [None]
